FAERS Safety Report 10334113 (Version 2)
Quarter: 2014Q4

REPORT INFORMATION
  Report Type: Spontaneous
  Country: IT (occurrence: None)
  Receive Date: 20140721
  Receipt Date: 20141027
  Transmission Date: 20150528
  Serious: Yes (Hospitalization)
  Sender: FDA-Public Use
  Company Number: VAL_03215_2014

PATIENT
  Age: 64 Year
  Sex: Female

DRUGS (7)
  1. CARDIOASPIRIN [Concomitant]
     Active Substance: ASPIRIN
  2. ROCALTROL [Suspect]
     Active Substance: CALCITRIOL
     Indication: HYPOPARATHYROIDISM
     Route: 048
     Dates: start: 20140228, end: 20140620
  3. TAVOR [Concomitant]
     Active Substance: LORAZEPAM
  4. CITALOPRAM [Concomitant]
     Active Substance: CITALOPRAM HYDROBROMIDE
  5. LEVOFLOXACIN. [Concomitant]
     Active Substance: LEVOFLOXACIN
  6. CALCIUM CARBONATE (CALCIUM CARBONATE) (CALCIUM CARBONATE) [Suspect]
     Active Substance: CALCIUM CARBONATE
     Indication: HYPOPARATHYROIDISM
     Route: 048
     Dates: start: 20140101, end: 20140620
  7. ANTRA [Concomitant]
     Active Substance: OMEPRAZOLE

REACTIONS (5)
  - Acute kidney injury [None]
  - Headache [None]
  - Hypokalaemia [None]
  - Toxicity to various agents [None]
  - Hypercalcaemia [None]

NARRATIVE: CASE EVENT DATE: 20140620
